FAERS Safety Report 8355356-4 (Version None)
Quarter: 2012Q2

REPORT INFORMATION
  Report Type: 
  Country: None (occurrence: None)
  Receive Date: 20120511
  Receipt Date: 20120509
  Transmission Date: 20120825
  Serious: Yes (Other)
  Sender: FDA-Public Use
  Company Number: IL-PFIZER INC-2012105531

PATIENT
  Age: 60 Year
  Sex: Female

DRUGS (4)
  1. PLAVIX [Concomitant]
  2. LYRICA [Suspect]
     Indication: PAIN IN EXTREMITY
  3. GLUCOPHAGE [Concomitant]
  4. INSULIN [Concomitant]

REACTIONS (4)
  - FEELING ABNORMAL [None]
  - MALAISE [None]
  - INSOMNIA [None]
  - ACTIVITIES OF DAILY LIVING IMPAIRED [None]
